FAERS Safety Report 16142172 (Version 2)
Quarter: 2019Q3

REPORT INFORMATION
  Report Type: Spontaneous
  Country: US (occurrence: US)
  Receive Date: 20190401
  Receipt Date: 20190827
  Transmission Date: 20191004
  Serious: Yes (Other)
  Sender: FDA-Public Use
  Company Number: US-SA-2019SA085170

PATIENT
  Age: 63 Year
  Sex: Female
  Weight: 68 kg

DRUGS (12)
  1. VITAMIN D [VITAMIN D NOS] [Concomitant]
     Active Substance: VITAMIN D NOS
  2. METOPROLOL. [Concomitant]
     Active Substance: METOPROLOL
  3. ARIMIDEX [Concomitant]
     Active Substance: ANASTROZOLE
  4. ADRIAMYCIN [Concomitant]
     Active Substance: DOXORUBICIN HYDROCHLORIDE
     Indication: BREAST CANCER FEMALE
  5. LOSARTAN. [Concomitant]
     Active Substance: LOSARTAN
  6. DOCETAXEL. [Suspect]
     Active Substance: DOCETAXEL
     Indication: BREAST CANCER FEMALE
     Dosage: 130 MG, QM
     Route: 042
     Dates: start: 20120507, end: 20120507
  7. NEOSAR [Concomitant]
     Active Substance: CYCLOPHOSPHAMIDE
     Indication: BREAST CANCER FEMALE
  8. CERUBIDINE [Concomitant]
     Active Substance: DAUNORUBICIN HYDROCHLORIDE
     Indication: BREAST CANCER FEMALE
  9. NEXIUM I.V. [Concomitant]
     Active Substance: ESOMEPRAZOLE SODIUM
  10. CENTRUM SILVER [ASCORBIC ACID;CALCIUM;MINERALS NOS;RETINOL;TOCOPHERYL [Concomitant]
  11. ALENDRONATE [Concomitant]
     Active Substance: ALENDRONATE SODIUM
  12. DOCETAXEL. [Suspect]
     Active Substance: DOCETAXEL
     Dosage: 130 MG, QM
     Route: 042
     Dates: start: 20120910, end: 20120910

REACTIONS (1)
  - Alopecia [Recovering/Resolving]

NARRATIVE: CASE EVENT DATE: 20121130
